FAERS Safety Report 8549678-1 (Version None)
Quarter: 2012Q3

REPORT INFORMATION
  Report Type: 
  Country: None (occurrence: None)
  Receive Date: 20120730
  Receipt Date: 20120724
  Transmission Date: 20120928
  Serious: Yes (Other)
  Sender: FDA-Public Use
  Company Number: US-PFIZER INC-2012132499

PATIENT

DRUGS (3)
  1. DILANTIN [Suspect]
     Dosage: UNK
  2. LYRICA [Suspect]
     Dosage: UNK
  3. DETROL LA [Suspect]
     Dosage: UNK

REACTIONS (1)
  - DEMENTIA ALZHEIMER'S TYPE [None]
